FAERS Safety Report 8501789-2 (Version None)
Quarter: 2012Q3

REPORT INFORMATION
  Report Type: 
  Country: None (occurrence: None)
  Receive Date: 20120705
  Receipt Date: 20120705
  Transmission Date: 20120928
  Serious: No
  Sender: FDA-Public Use
  Company Number: None

PATIENT
  Age: 25 Year
  Sex: Female
  Weight: 72.5755 kg

DRUGS (1)
  1. MONISTAT [Suspect]
     Indication: FUNGAL INFECTION
     Dosage: ONE TIME ONCE VAG
     Route: 067
     Dates: start: 20120602, end: 20120602

REACTIONS (3)
  - THINKING ABNORMAL [None]
  - INSOMNIA [None]
  - APPLICATION SITE PAIN [None]
